FAERS Safety Report 6870658-6 (Version None)
Quarter: 2010Q3

REPORT INFORMATION
  Report Type: 
  Country: None (occurrence: None)
  Receive Date: 20100723
  Receipt Date: 20100720
  Transmission Date: 20110219
  Serious: Yes (Death, Life-Threatening, Hospitalization)
  Sender: FDA-Public Use
  Company Number: PHHY2010US47853

PATIENT
  Sex: Female
  Weight: 129 kg

DRUGS (2)
  1. RECLAST [Suspect]
     Indication: OSTEOPOROSIS POSTMENOPAUSAL
     Dosage: 5 MG
     Dates: start: 20100325
  2. COUMADIN [Concomitant]

REACTIONS (2)
  - DISORIENTATION [None]
  - HAEMORRHAGE INTRACRANIAL [None]
